FAERS Safety Report 9237898 (Version 2)
Quarter: 2013Q3

REPORT INFORMATION
  Report Type: Spontaneous
  Country: US (occurrence: US)
  Receive Date: 20130418
  Receipt Date: 20130922
  Transmission Date: 20140515
  Serious: No
  Sender: FDA-Public Use
  Company Number: US-009507513-1304USA007277

PATIENT
  Age: 24 Year
  Sex: Female

DRUGS (3)
  1. VICTRELIS [Suspect]
     Indication: HEPATITIS C
     Dosage: UNK
     Route: 048
     Dates: start: 20130408
  2. RIBAPAK [Suspect]
  3. PEGASYS [Suspect]

REACTIONS (3)
  - Nausea [Recovering/Resolving]
  - Fatigue [Recovering/Resolving]
  - Product quality issue [Unknown]
